FAERS Safety Report 4417086-0 (Version None)
Quarter: 2004Q2

REPORT INFORMATION
  Report Type: 
  Country: None (occurrence: None)
  Receive Date: 20040629
  Receipt Date: 20031218
  Transmission Date: 20050107
  Serious: Yes (Hospitalization)
  Sender: FDA-Public Use
  Company Number: US061215

PATIENT

DRUGS (6)
  1. ARANESP [Suspect]
     Indication: ANAEMIA OF MALIGNANT DISEASE
     Dosage: WEEKLY, SC
     Route: 058
     Dates: start: 20031110, end: 20031208
  2. ZOLEDRONIC ACID [Concomitant]
  3. LORAZEPAM [Concomitant]
  4. DEXTROPROPOXYPHENE NAPSILATE W/ ACETOMINOPHEN [Concomitant]
  5. PANTOPRAZOLE [Concomitant]
  6. CYANOCOBALAMIN [Concomitant]

REACTIONS (9)
  - DEHYDRATION [None]
  - DIZZINESS [None]
  - DYSPNOEA [None]
  - FLUID RETENTION [None]
  - METASTASIS [None]
  - NAUSEA [None]
  - PULMONARY EMBOLISM [None]
  - PYREXIA [None]
  - VOMITING [None]
